FAERS Safety Report 8537869 (Version 2)
Quarter: 2013Q2

REPORT INFORMATION
  Report Type: Report from Study
  Country: VE (occurrence: VE)
  Receive Date: 20120501
  Receipt Date: 20130607
  Transmission Date: 20140414
  Serious: Yes (Other)
  Sender: FDA-Public Use
  Company Number: PHHY2011VE108228

PATIENT
  Age: 70 Year
  Sex: Female

DRUGS (8)
  1. ACLASTA [Suspect]
     Indication: OSTEOPOROSIS
     Dosage: 5 MG, ONCE A YEAR
     Route: 042
     Dates: start: 20100509
  2. ACLASTA [Suspect]
     Dosage: 5 MG, ONCE A YEAR
     Route: 042
     Dates: start: 20110509
  3. CALCIUM [Concomitant]
     Dosage: UNK UKN, UNK
  4. INSULIN [Concomitant]
     Indication: DIABETES MELLITUS
     Dosage: UNK UKN, UNK
  5. VITAMINS NOS [Concomitant]
     Dosage: UNK UKN, UNK
  6. ZALDIAR [Concomitant]
     Indication: PAIN
     Dosage: UNK UKN, UNK
     Route: 048
  7. LYRICA [Concomitant]
     Indication: PAIN
     Dosage: UNK UKN, UNK
  8. TRAMAL [Concomitant]
     Indication: PAIN
     Dosage: UNK UKN, UNK
     Route: 048

REACTIONS (7)
  - Inflammation [Not Recovered/Not Resolved]
  - Pain [Unknown]
  - Hip deformity [Unknown]
  - Myalgia [Unknown]
  - Arthralgia [Unknown]
  - Groin pain [Unknown]
  - Bone pain [Unknown]
